FAERS Safety Report 15065655 (Version 2)
Quarter: 2018Q3

REPORT INFORMATION
  Report Type: Spontaneous
  Country: US (occurrence: US)
  Receive Date: 20180626
  Receipt Date: 20180723
  Transmission Date: 20181010
  Serious: Yes (Hospitalization)
  Sender: FDA-Public Use
  Company Number: US-PFIZER INC-2018256687

PATIENT
  Age: 69 Year
  Sex: Female

DRUGS (1)
  1. VISTARIL [Suspect]
     Active Substance: HYDROXYZINE PAMOATE
     Indication: SLEEP DISORDER
     Dosage: 50 MG, 3X/DAY
     Dates: start: 20061121

REACTIONS (3)
  - Bedridden [Not Recovered/Not Resolved]
  - Product use in unapproved indication [Unknown]
  - Pruritus [Recovered/Resolved]
